FAERS Safety Report 8007442-6 (Version None)
Quarter: 2011Q4

REPORT INFORMATION
  Report Type: 
  Country: None (occurrence: None)
  Receive Date: 20111227
  Receipt Date: 20111221
  Transmission Date: 20120403
  Serious: Yes (Other)
  Sender: FDA-Public Use
  Company Number: US-PFIZER INC-2011311262

PATIENT
  Sex: Female
  Weight: 108 kg

DRUGS (10)
  1. ASPIRIN [Concomitant]
     Indication: CEREBROVASCULAR ACCIDENT
     Dosage: UNK, DAILY
  2. TEMAZEPAM [Concomitant]
     Indication: SLEEP DISORDER
     Dosage: 50 MG, DAILY
  3. CITALOPRAM [Concomitant]
     Indication: DEPRESSION
     Dosage: 30 MG, DAILY
  4. LIPITOR [Concomitant]
     Indication: BLOOD CHOLESTEROL INCREASED
     Dosage: 10 MG, DAILY
  5. ENALAPRIL [Concomitant]
     Indication: HYPERTENSION
     Dosage: 25 MG, DAILY
  6. GEODON [Suspect]
     Indication: AFFECTIVE DISORDER
     Dosage: FOUR CAPSULES OF 60MG, DAILY AT NIGHT
     Route: 048
  7. HYDROCHLOROTHIAZIDE [Concomitant]
     Indication: DIURETIC THERAPY
     Dosage: UNK, DAILY
  8. GEODON [Suspect]
     Dosage: TWO CAPSULES, UNK
     Route: 048
     Dates: start: 20111101
  9. SYNTHROID [Concomitant]
     Indication: THYROID DISORDER
     Dosage: 88 UG, DAILY
  10. ASPIRIN [Concomitant]
     Indication: PROPHYLAXIS

REACTIONS (1)
  - TRANSIENT ISCHAEMIC ATTACK [None]
